FAERS Safety Report 17384513 (Version 1)
Quarter: 2020Q1

REPORT INFORMATION
  Report Type: Spontaneous
  Country: US (occurrence: US)
  Receive Date: 20200206
  Receipt Date: 20200206
  Transmission Date: 20200409
  Serious: Yes (Hospitalization)
  Sender: FDA-Public Use
  Company Number: US-ABBVIE-19K-163-2758501-00

PATIENT
  Age: 75 Year
  Sex: Female
  Weight: 104.42 kg

DRUGS (2)
  1. HUMIRA [Suspect]
     Active Substance: ADALIMUMAB
     Indication: RHEUMATOID ARTHRITIS
     Dosage: START DATE TEXT-6-7 YEARS AGO
     Route: 058
     Dates: start: 2012, end: 2018
  2. HUMIRA [Suspect]
     Active Substance: ADALIMUMAB
     Indication: PSORIATIC ARTHROPATHY
     Route: 058
     Dates: start: 201903

REACTIONS (4)
  - Pharyngitis streptococcal [Unknown]
  - Streptococcal infection [Recovered/Resolved]
  - Nail injury [Unknown]
  - Needle issue [Unknown]

NARRATIVE: CASE EVENT DATE: 201806
